FAERS Safety Report 9852928 (Version 1)
Quarter: 2014Q1

REPORT INFORMATION
  Report Type: Spontaneous
  Country: US (occurrence: None)
  Receive Date: 20140128
  Receipt Date: 20140128
  Transmission Date: 20141002
  Serious: Yes (Hospitalization)
  Sender: FDA-Public Use
  Company Number: None

PATIENT
  Age: 75 Year
  Sex: Female
  Weight: 74.6 kg

DRUGS (7)
  1. CYCLOPHOSPHAMIDE [Suspect]
  2. DOXORUBICIN HYDROCHLORIDE [Suspect]
  3. ETOPOSIDE (VP-16) [Suspect]
  4. VINCRISTINE SULFATE [Suspect]
  5. BACTRIM [Concomitant]
  6. MEROPENEM [Concomitant]
  7. VANCOMYCIN [Concomitant]

REACTIONS (13)
  - Respiratory failure [None]
  - Ileus [None]
  - Pulmonary oedema [None]
  - Rash [None]
  - Blister [None]
  - Ulcer [None]
  - Skin exfoliation [None]
  - Toxic epidermal necrolysis [None]
  - Neutropenia [None]
  - Thrombocytopenia [None]
  - Bacteraemia [None]
  - Septic shock [None]
  - Hepatic failure [None]
